FAERS Safety Report 9045736 (Version 1)
Quarter: 2013Q1

REPORT INFORMATION
  Report Type: Report from Study
  Country: US (occurrence: US)
  Receive Date: 20130131
  Receipt Date: 20130131
  Transmission Date: 20140127
  Serious: Yes (Other)
  Sender: FDA-Public Use
  Company Number: US-ABBOTT-12P-163-0992006-00

PATIENT
  Age: 33 Year
  Sex: Female

DRUGS (6)
  1. HUMIRA [Suspect]
     Indication: CROHN^S DISEASE
     Dates: start: 2008, end: 2009
  2. HUMIRA [Suspect]
     Dates: start: 2010
  3. LYRICA [Concomitant]
     Indication: MIGRAINE
  4. FLEXERIL [Concomitant]
     Indication: MIGRAINE
  5. TOPAMAX [Concomitant]
     Indication: MIGRAINE
  6. UNKNOWN MEDICATIONS [Concomitant]
     Indication: PRODUCT USED FOR UNKNOWN INDICATION

REACTIONS (17)
  - Intestinal resection [Recovered/Resolved]
  - Appendicectomy [Unknown]
  - Injection site pain [Unknown]
  - Colostomy closure [Unknown]
  - Device malfunction [Unknown]
  - Incorrect dose administered [Unknown]
  - Injection site pain [Unknown]
  - Injection site pain [Unknown]
  - Device malfunction [Unknown]
  - Device malfunction [Unknown]
  - Injection site extravasation [Unknown]
  - Injection site extravasation [Unknown]
  - Injection site nodule [Unknown]
  - Injection site nodule [Unknown]
  - Device malfunction [Unknown]
  - Device malfunction [Unknown]
  - Injection site reaction [Unknown]
